FAERS Safety Report 16500077 (Version 2)
Quarter: 2019Q3

REPORT INFORMATION
  Report Type: Spontaneous
  Country: CA (occurrence: CA)
  Receive Date: 20190701
  Receipt Date: 20190725
  Transmission Date: 20191004
  Serious: Yes (Other)
  Sender: FDA-Public Use
  Company Number: CA-ORION CORPORATION ORION PHARMA-TREX2019-2077

PATIENT
  Age: 62 Year
  Sex: Male

DRUGS (2)
  1. CORTIMENT [Concomitant]
     Route: 065
  2. METHOTREXATE (TRADE NAME UNKNOWN) [Suspect]
     Active Substance: METHOTREXATE
     Indication: PRODUCT USED FOR UNKNOWN INDICATION
     Route: 065

REACTIONS (5)
  - Arthralgia [Unknown]
  - Hepatitis C [Recovered/Resolved]
  - Blood cholesterol increased [Unknown]
  - Haemophilia [Unknown]
  - Hypertension [Unknown]
